FAERS Safety Report 18990540 (Version 2)
Quarter: 2021Q1

REPORT INFORMATION
  Report Type: Spontaneous
  Country: CH (occurrence: CH)
  Receive Date: 20210310
  Receipt Date: 20210312
  Transmission Date: 20210420
  Serious: Yes (Hospitalization)
  Sender: FDA-Public Use
  Company Number: NVSC2021CH053263

PATIENT
  Age: 76 Year
  Sex: Male

DRUGS (2)
  1. AMOXICILLIN,CLAVULANIC ACID [Suspect]
     Active Substance: AMOXICILLIN\CLAVULANIC ACID
     Indication: ANTIBIOTIC PROPHYLAXIS
     Dosage: 1.2 G, TID (INITIALLY)
     Route: 065
  2. AMOXICILLIN,CLAVULANIC ACID [Suspect]
     Active Substance: AMOXICILLIN\CLAVULANIC ACID
     Dosage: 2.2 G, QID (FROM THE 4TH POSTOPERATIVE DAY  IN THE CONTEXT OF CLINIC DETERIORATION)
     Route: 065

REACTIONS (10)
  - Pyrexia [Unknown]
  - Urinary incontinence [Unknown]
  - General physical health deterioration [Unknown]
  - Headache [Unknown]
  - Speech disorder [Unknown]
  - Nausea [Unknown]
  - Encephalitis [Recovering/Resolving]
  - Confusional state [Unknown]
  - Vomiting [Unknown]
  - Disorientation [Unknown]
